FAERS Safety Report 14293332 (Version 5)
Quarter: 2018Q1

REPORT INFORMATION
  Report Type: Spontaneous
  Country: FR (occurrence: FR)
  Receive Date: 20171215
  Receipt Date: 20180306
  Transmission Date: 20180509
  Serious: Yes (Disabling, Other)
  Sender: FDA-Public Use
  Company Number: FR-ALLERGAN-1771193US

PATIENT
  Age: 32 Year
  Sex: Male

DRUGS (32)
  1. VALIUM [Concomitant]
     Active Substance: DIAZEPAM
     Indication: PRODUCT USED FOR UNKNOWN INDICATION
     Dosage: 1 DF, SINGLE
     Route: 051
     Dates: start: 20101115, end: 20101115
  2. CITALOPRAM HYDROBROMIDE - BP [Suspect]
     Active Substance: CITALOPRAM HYDROBROMIDE
     Indication: PRODUCT USED FOR UNKNOWN INDICATION
     Dosage: UNK
     Route: 048
     Dates: start: 20110318
  3. NEBIVOLOL HCL - BP [Suspect]
     Active Substance: NEBIVOLOL
     Dosage: 2 DF, QD
     Route: 048
     Dates: start: 20110510, end: 201207
  4. RIVOTRIL [Suspect]
     Active Substance: CLONAZEPAM
     Indication: NECK PAIN
     Dosage: 5-8 GTT, QD
     Route: 065
     Dates: start: 20110219, end: 20110302
  5. TETRAZEPAM [Suspect]
     Active Substance: TETRAZEPAM
     Dosage: UNK
     Route: 048
     Dates: start: 20110705
  6. ATARAX [Suspect]
     Active Substance: HYDROXYZINE HYDROCHLORIDE
     Indication: PRODUCT USED FOR UNKNOWN INDICATION
     Dosage: UNK
     Route: 048
     Dates: start: 20120131, end: 201207
  7. TANGANIL [Concomitant]
     Active Substance: ACETYLLEUCINE
     Indication: PRODUCT USED FOR UNKNOWN INDICATION
     Dosage: 3 DF, QD
     Route: 048
     Dates: start: 20110303
  8. DOLIPRANE [Concomitant]
     Active Substance: ACETAMINOPHEN
     Dosage: 3 DF, QD
     Route: 048
     Dates: start: 20110328
  9. MILNACIPRAN - BP [Suspect]
     Active Substance: MILNACIPRAN
     Indication: PANIC ATTACK
     Dosage: 2 DF, QD
     Route: 048
     Dates: start: 20110322
  10. LAROXYL [Suspect]
     Active Substance: AMITRIPTYLINE HYDROCHLORIDE
     Indication: NECK PAIN
     Dosage: 5-8 GTT, QD
     Route: 065
     Dates: start: 20110219
  11. MIOREL [Concomitant]
     Dosage: 3 DF, QD
     Route: 048
     Dates: start: 20101210
  12. MIOREL [Concomitant]
     Dosage: 3 DF, QD
     Route: 048
     Dates: start: 20101213
  13. RIVOTRIL [Suspect]
     Active Substance: CLONAZEPAM
     Dosage: UNK
     Route: 065
     Dates: start: 20110510
  14. PRAXINOR [Concomitant]
     Indication: PRODUCT USED FOR UNKNOWN INDICATION
     Dosage: 2 DF, UNK
     Route: 048
     Dates: start: 20101127
  15. DOLIPRANE [Concomitant]
     Active Substance: ACETAMINOPHEN
     Dosage: 3 DF, QD
     Route: 048
     Dates: start: 20110201
  16. MIOREL [Concomitant]
     Dosage: 3 DF, UNK
     Route: 048
     Dates: start: 20110201
  17. NEBIVOLOL HCL - BP [Suspect]
     Active Substance: NEBIVOLOL
     Dosage: 2 DF, QD
     Route: 048
     Dates: start: 20110718, end: 201207
  18. RIVOTRIL [Suspect]
     Active Substance: CLONAZEPAM
     Dosage: 15 GTT, QD
     Route: 065
     Dates: start: 20110303, end: 20110327
  19. TETRAZEPAM [Suspect]
     Active Substance: TETRAZEPAM
     Dosage: UNK
     Route: 048
     Dates: start: 20110726
  20. DI-ANTALVIC [Suspect]
     Active Substance: ACETAMINOPHEN\PROPOXYPHENE HYDROCHLORIDE
     Indication: PAIN
     Dosage: 2 DF, Q6HR
     Route: 048
     Dates: start: 20100606
  21. NUREFLEX [Concomitant]
     Active Substance: IBUPROFEN
     Indication: PRODUCT USED FOR UNKNOWN INDICATION
     Dosage: UNK
     Route: 048
     Dates: start: 20101213
  22. RIVOTRIL [Suspect]
     Active Substance: CLONAZEPAM
     Dosage: 5-8 GTT, QD
     Dates: start: 20110328
  23. DOLIPRANE [Concomitant]
     Active Substance: ACETAMINOPHEN
     Indication: PRODUCT USED FOR UNKNOWN INDICATION
     Dosage: 1 DF, QD
     Route: 048
     Dates: start: 20101213
  24. UVEDOSE [Concomitant]
     Active Substance: CHOLECALCIFEROL
     Indication: PRODUCT USED FOR UNKNOWN INDICATION
     Dosage: 1000000 IU, Q2WEEKS
     Route: 065
     Dates: start: 20110219
  25. MIOREL [Concomitant]
     Indication: PRODUCT USED FOR UNKNOWN INDICATION
     Dosage: 1 DF, QD
     Route: 048
     Dates: start: 20100606
  26. SOLUPRED (PREDNISOLONE) [Concomitant]
     Active Substance: PREDNISOLONE
     Indication: PRODUCT USED FOR UNKNOWN INDICATION
     Dosage: UNK
     Route: 048
     Dates: start: 20110726
  27. NEBIVOLOL HCL - BP [Suspect]
     Active Substance: NEBIVOLOL
     Indication: CARDIAC DISORDER
     Dosage: 2 DF, QD
     Route: 048
     Dates: start: 20101115, end: 20110509
  28. RIVOTRIL [Suspect]
     Active Substance: CLONAZEPAM
     Dosage: UNK
     Route: 065
     Dates: start: 20110718, end: 201110
  29. PAROXETINE. [Suspect]
     Active Substance: PAROXETINE
     Indication: PRODUCT USED FOR UNKNOWN INDICATION
     Dosage: UNK
     Route: 048
     Dates: start: 20110201
  30. TETRAZEPAM [Suspect]
     Active Substance: TETRAZEPAM
     Indication: PRODUCT USED FOR UNKNOWN INDICATION
     Dosage: UNK
     Route: 048
     Dates: start: 20110228
  31. STRESAM [Concomitant]
     Active Substance: ETIFOXINE
     Indication: PRODUCT USED FOR UNKNOWN INDICATION
     Dosage: UNK
     Route: 048
     Dates: start: 20120327
  32. COVATINE [Concomitant]
     Active Substance: CAPTODIAME HYDROCHLORIDE
     Indication: PRODUCT USED FOR UNKNOWN INDICATION
     Dosage: UNK
     Route: 048
     Dates: start: 20120620, end: 201207

REACTIONS (25)
  - Limb discomfort [Unknown]
  - Erectile dysfunction [Not Recovered/Not Resolved]
  - Suicidal ideation [Recovered/Resolved]
  - Personal relationship issue [Recovered/Resolved]
  - Visual impairment [Recovered/Resolved]
  - Hypoacusis [Recovered/Resolved]
  - Drug intolerance [Recovering/Resolving]
  - Neurosis [Recovered/Resolved]
  - Dyspnoea [Unknown]
  - Tinnitus [Recovered/Resolved]
  - Tachycardia [Recovered/Resolved]
  - Asthenia [Unknown]
  - Agoraphobia [Recovered/Resolved]
  - Memory impairment [Recovered/Resolved]
  - Psychotic disorder [Recovered/Resolved]
  - Anxiety [Recovered/Resolved]
  - Intervertebral disc disorder [Unknown]
  - Pain in extremity [Unknown]
  - Post-traumatic stress disorder [Recovered/Resolved]
  - Malaise [Recovered/Resolved]
  - Hallucination, auditory [Recovered/Resolved]
  - Panic attack [Recovered/Resolved]
  - Musculoskeletal pain [Unknown]
  - Hypertonia [Unknown]
  - Off label use [Unknown]

NARRATIVE: CASE EVENT DATE: 2010
